FAERS Safety Report 8837534 (Version 4)
Quarter: 2012Q4

REPORT INFORMATION
  Report Type: 
  Country: US (occurrence: US)
  Receive Date: 20121012
  Receipt Date: 20121121
  Transmission Date: 20130627
  Serious: Yes (Disabling, Other)
  Sender: FDA-Public Use
  Company Number: US-PFIZER INC-2012249306

PATIENT
  Age: 60 Year
  Sex: Male
  Weight: 72.1 kg

DRUGS (2)
  1. PRISTIQ [Suspect]
     Indication: DEPRESSION
     Dosage: 50 mg, 1x/day
     Route: 048
     Dates: start: 200907, end: 200912
  2. PRISTIQ [Suspect]
     Dosage: 50 mg, 1x/day
     Route: 048
     Dates: start: 20121009, end: 20121021

REACTIONS (5)
  - Joint injury [Unknown]
  - Depression [Not Recovered/Not Resolved]
  - Agitation [Recovered/Resolved]
  - Male orgasmic disorder [Not Recovered/Not Resolved]
  - Erectile dysfunction [Not Recovered/Not Resolved]
